FAERS Safety Report 9685051 (Version 1)
Quarter: 2013Q4

REPORT INFORMATION
  Report Type: Report from Study
  Country: CA (occurrence: CA)
  Receive Date: 20131113
  Receipt Date: 20131113
  Transmission Date: 20140711
  Serious: Yes (Hospitalization)
  Sender: FDA-Public Use
  Company Number: CA-JNJFOC-20131105156

PATIENT
  Age: 50 Year
  Sex: Male
  Weight: 80 kg

DRUGS (9)
  1. REMICADE [Suspect]
     Indication: ANKYLOSING SPONDYLITIS
     Route: 042
  2. REMICADE [Suspect]
     Indication: CROHN^S DISEASE
     Route: 042
  3. RISEDRONATE [Concomitant]
     Route: 065
  4. PANTOPRAZOLE [Concomitant]
     Route: 065
  5. CALCIUM/VIT D [Concomitant]
     Route: 065
  6. PREDNISONE [Concomitant]
     Route: 065
  7. NORVASC [Concomitant]
     Route: 065
  8. ACTONEL [Concomitant]
     Route: 065
  9. RAMIPRIL [Concomitant]
     Route: 065

REACTIONS (1)
  - Renal colic [Not Recovered/Not Resolved]
